FAERS Safety Report 5998301-9 (Version None)
Quarter: 2008Q4

REPORT INFORMATION
  Report Type: 
  Country: None (occurrence: None)
  Receive Date: 20081213
  Receipt Date: 20080627
  Transmission Date: 20090506
  Serious: No
  Sender: FDA-Public Use
  Company Number: US-AMGEN-KDL279702

PATIENT
  Sex: Female

DRUGS (9)
  1. ENBREL [Suspect]
     Indication: ANKYLOSING SPONDYLITIS
     Route: 058
     Dates: start: 20030116
  2. LYRICA [Concomitant]
     Route: 048
  3. CARTIA XT [Concomitant]
  4. DESYREL [Concomitant]
     Route: 048
  5. LIDODERM PATCH (ENDO PHARMACEUTICALS) [Concomitant]
  6. NEXIUM [Concomitant]
     Route: 048
  7. TRIAMTERENE [Concomitant]
  8. ULTRACET [Concomitant]
  9. VICODIN ES [Concomitant]
     Route: 048

REACTIONS (5)
  - ACTINIC KERATOSIS [None]
  - CAPILLARY FRAGILITY [None]
  - ECCHYMOSIS [None]
  - SKIN HAEMORRHAGE [None]
  - VARICOSE VEIN [None]
